FAERS Safety Report 5566303-2 (Version None)
Quarter: 2007Q4

REPORT INFORMATION
  Report Type: 
  Country: None (occurrence: None)
  Receive Date: 20071219
  Receipt Date: 20071213
  Transmission Date: 20080405
  Serious: Yes (Other)
  Sender: FDA-Public Use
  Company Number: DE-NOVOPROD-268947

PATIENT
  Age: 66 Year
  Sex: Female
  Weight: 91 kg

DRUGS (6)
  1. NOVONORM [Suspect]
     Indication: TYPE 2 DIABETES MELLITUS
     Dosage: 10 MG, QD
     Route: 048
     Dates: start: 20030101, end: 20071101
  2. EUTHYROX [Concomitant]
     Dosage: 75 UG, QD
     Route: 048
     Dates: start: 19900101
  3. BELOC ZOK [Concomitant]
     Dosage: 95 MG, BID
     Route: 048
     Dates: start: 19970101
  4. HCT BETA [Concomitant]
     Dosage: 25 MG, QD
     Route: 048
  5. ACTOS [Concomitant]
     Dosage: 30 MG, QD
     Route: 048
     Dates: start: 20071101
  6. GLIMEPIRIDE [Concomitant]
     Dosage: UNK, QD
     Route: 048
     Dates: start: 20071101

REACTIONS (1)
  - SKIN NODULE [None]
